FAERS Safety Report 5593066-7 (Version None)
Quarter: 2008Q1

REPORT INFORMATION
  Report Type: 
  Country: None (occurrence: None)
  Receive Date: 20080116
  Receipt Date: 20080111
  Transmission Date: 20080703
  Serious: Yes (Hospitalization)
  Sender: FDA-Public Use
  Company Number: SE-BAYER-200810769GPV

PATIENT
  Age: 55 Year
  Sex: Female

DRUGS (7)
  1. BETASERON [Suspect]
     Indication: MULTIPLE SCLEROSIS
     Route: 058
     Dates: start: 19990901, end: 20050901
  2. SELOKEN ZOC/ MELOPROLOL [Concomitant]
  3. DETRUSITOL / TOLDERODIN [Concomitant]
  4. ENALAPRIL MALEATE [Concomitant]
  5. SIMVASTATIN [Concomitant]
  6. FURADANTIN [Concomitant]
  7. FLUNITRAZEPAM [Concomitant]

REACTIONS (1)
  - MYELODYSPLASTIC SYNDROME [None]
